FAERS Safety Report 11320007 (Version 11)
Quarter: 2016Q4

REPORT INFORMATION
  Report Type: Report from Study
  Country: JP (occurrence: JP)
  Receive Date: 20150729
  Receipt Date: 20161104
  Transmission Date: 20170206
  Serious: Yes (Other)
  Sender: FDA-Public Use
  Company Number: JP-OTSUKA-2015_006184

PATIENT
  Age: 52 Year
  Sex: Male
  Weight: 83.4 kg

DRUGS (7)
  1. CARVEDILOL. [Concomitant]
     Active Substance: CARVEDILOL
     Indication: PRODUCT USED FOR UNKNOWN INDICATION
     Dosage: 1 DF, QD
     Route: 048
  2. ZACRAS [Concomitant]
     Active Substance: AMLODIPINE BESYLATE\AZILSARTAN
     Indication: PRODUCT USED FOR UNKNOWN INDICATION
     Dosage: 1 DF, QD
     Route: 048
  3. TOLVAPTAN [Suspect]
     Active Substance: TOLVAPTAN
     Dosage: 45 MG, DAILY DOSE (DIVIDED INTO 2 DOSES)
     Route: 048
     Dates: start: 20150729, end: 20151031
  4. MYSLEE [Concomitant]
     Active Substance: ZOLPIDEM TARTRATE
     Indication: INSOMNIA
     Dosage: 1 DF, QD
     Route: 048
  5. TOLVAPTAN [Suspect]
     Active Substance: TOLVAPTAN
     Indication: CONGENITAL CYSTIC KIDNEY DISEASE
     Dosage: 60 MG, DAILY DOSE (DIVIDED INTO 2 DOSES)
     Route: 048
     Dates: start: 20150706, end: 20150722
  6. FEBURIC [Concomitant]
     Active Substance: FEBUXOSTAT
     Indication: PRODUCT USED FOR UNKNOWN INDICATION
     Dosage: 1 DF, QD
     Route: 048
  7. TOLVAPTAN [Suspect]
     Active Substance: TOLVAPTAN
     Dosage: 60 MG, DAILY DOSE (DIVIDED INTO 2 DOSES)
     Route: 048
     Dates: start: 20151101

REACTIONS (2)
  - Blood potassium increased [Recovering/Resolving]
  - Blood triglycerides increased [Recovering/Resolving]

NARRATIVE: CASE EVENT DATE: 20150722
